FAERS Safety Report 7712366-5 (Version None)
Quarter: 2011Q3

REPORT INFORMATION
  Report Type: 
  Country: None (occurrence: None)
  Receive Date: 20110826
  Receipt Date: 20110818
  Transmission Date: 20111222
  Serious: Yes (Hospitalization)
  Sender: FDA-Public Use
  Company Number: FR-ROCHE-795357

PATIENT
  Sex: Female

DRUGS (25)
  1. NEORAL [Suspect]
     Route: 048
     Dates: start: 20110301
  2. MOPRAL 20 [Concomitant]
     Dosage: FREQUENCY:DAILY
     Route: 048
  3. KEPPRA [Concomitant]
     Dosage: DOSE INCREASED.
  4. GANCICLOVIR SODIUM [Suspect]
     Indication: CYTOMEGALOVIRUS INFECTION
     Dosage: FREQUENCY:DAILY
     Route: 042
     Dates: start: 20110429, end: 20110607
  5. FLUCONAZOLE [Concomitant]
  6. HEPARIN [Concomitant]
     Dosage: BY ELECTRIC SYRINGE
     Route: 042
  7. ZOFRAN [Concomitant]
     Dosage: REPORTED AS 8 MG 2 AMPOULES/DAY BY ELECTRIC SYRINGE
  8. TRANXENE [Concomitant]
  9. AMOXICILLIN TRIHYDRATE [Suspect]
     Indication: PROPHYLAXIS
     Route: 048
     Dates: start: 20110301
  10. OMEPRAZOLE [Concomitant]
  11. GELOX [Concomitant]
     Dosage: REPORTED AS 3 SACHETS/DAY
  12. KEPPRA [Concomitant]
  13. LERCANIDIPINE [Concomitant]
  14. VALGANCICLOVIR [Concomitant]
     Indication: CYTOMEGALOVIRUS INFECTION
     Dosage: FOR 15 DAYS
     Route: 065
     Dates: start: 20110415
  15. CELLCEPT [Suspect]
     Route: 048
     Dates: start: 20110301
  16. FLUCONAZOLE [Concomitant]
     Dosage: FREQUENCY:DAILY
     Route: 048
     Dates: start: 20110306
  17. CIPROFLOXACIN [Concomitant]
  18. CEFTAZIDIME SODIUM [Concomitant]
  19. LEVOTHYROXINE SODIUM [Concomitant]
  20. VANCOMYCIN [Concomitant]
  21. CYCLOSPORINE [Concomitant]
     Dosage: BY ELECTRIC SYRINGE
     Route: 042
  22. ZOVIRAX [Concomitant]
  23. MYCOSTATIN [Concomitant]
     Dosage: REPORTED AS 2 FLASKS/DAY
  24. PRIMPERAN TAB [Concomitant]
  25. RAMIPRIL [Concomitant]

REACTIONS (1)
  - EPILEPSY [None]
